FAERS Safety Report 26147368 (Version 1)
Quarter: 2025Q4

REPORT INFORMATION
  Report Type: Report from Study
  Country: US (occurrence: US)
  Receive Date: 20251211
  Receipt Date: 20251211
  Transmission Date: 20260118
  Serious: Yes (Other)
  Sender: SPRINGWORKS THERAPEUTIC
  Company Number: SW-001229

PATIENT
  Age: 43 Year
  Sex: Female

DRUGS (3)
  1. NIROGACESTAT [Suspect]
     Active Substance: NIROGACESTAT
     Indication: Desmoid tumour
     Dosage: 150 MILLIGRAM, BID
     Dates: start: 20240117
  2. NIROGACESTAT [Suspect]
     Active Substance: NIROGACESTAT
     Dosage: 100 MILLIGRAM, BID
  3. NIROGACESTAT [Suspect]
     Active Substance: NIROGACESTAT
     Dosage: 150 MILLIGRAM, QD

REACTIONS (25)
  - Gastrointestinal toxicity [Unknown]
  - Neuropathy peripheral [Unknown]
  - Abdominal discomfort [Not Recovered/Not Resolved]
  - Retching [Unknown]
  - Paraesthesia [Unknown]
  - Muscular weakness [Unknown]
  - Eating disorder [Unknown]
  - Vomiting [Recovering/Resolving]
  - Dehydration [Unknown]
  - Temperature regulation disorder [Unknown]
  - Decreased appetite [Unknown]
  - Taste disorder [Unknown]
  - Frequent bowel movements [Unknown]
  - Hypoaesthesia [Unknown]
  - Dysgeusia [Not Recovered/Not Resolved]
  - Asthenia [Unknown]
  - Cystitis [Recovering/Resolving]
  - Oral candidiasis [Recovering/Resolving]
  - Brain fog [Unknown]
  - Gastroenteritis viral [Recovered/Resolved]
  - Fatigue [Not Recovered/Not Resolved]
  - Nausea [Unknown]
  - Product dose omission issue [Unknown]
  - Therapy cessation [Unknown]
  - Underdose [Unknown]

NARRATIVE: CASE EVENT DATE: 20240117
